FAERS Safety Report 10973262 (Version 1)
Quarter: 2015Q2

REPORT INFORMATION
  Report Type: Spontaneous
  Country: US (occurrence: US)
  Receive Date: 20150401
  Receipt Date: 20150401
  Transmission Date: 20150821
  Serious: No
  Sender: FDA-Public Use
  Company Number: US-SUN PHARMACEUTICAL INDUSTRIES LTD-2014SUN02579

PATIENT

DRUGS (3)
  1. PROMETHAZINE HYDROCHLORIDE AND CODEINE PHOSPHATE 10MG/5ML [Suspect]
     Active Substance: CODEINE PHOSPHATE\PROMETHAZINE HYDROCHLORIDE
     Dosage: 5 ML, QID
     Route: 048
     Dates: start: 201409
  2. PROMETHAZINE HYDROCHLORIDE AND CODEINE PHOSPHATE 10MG/5ML [Suspect]
     Active Substance: CODEINE PHOSPHATE\PROMETHAZINE HYDROCHLORIDE
     Dosage: 5 ML, QID
     Route: 048
  3. PROMETHAZINE HYDROCHLORIDE AND CODEINE PHOSPHATE 10MG/5ML [Suspect]
     Active Substance: CODEINE PHOSPHATE\PROMETHAZINE HYDROCHLORIDE
     Indication: COUGH
     Dosage: 5 ML, QID
     Route: 048
     Dates: start: 201403

REACTIONS (2)
  - Diarrhoea [Not Recovered/Not Resolved]
  - Product quality issue [Unknown]

NARRATIVE: CASE EVENT DATE: 201409
